FAERS Safety Report 8610927-2 (Version None)
Quarter: 2012Q3

REPORT INFORMATION
  Report Type: 
  Country: None (occurrence: None)
  Receive Date: 20120808
  Receipt Date: 20120725
  Transmission Date: 20120928
  Serious: Yes (Death, Hospitalization, Other)
  Sender: FDA-Public Use
  Company Number: 2012MA009117

PATIENT
  Age: 39 Year
  Sex: Male

DRUGS (7)
  1. DIAZEPAM [Suspect]
     Dosage: 10 MG; QD
  2. DEXTROMETHORPHAN HYDROBROMIDE [Suspect]
  3. LAMOTRIGINE [Concomitant]
  4. METHADONE HCL [Suspect]
  5. OXYCODONE HCL [Suspect]
     Dosage: BID
  6. FLUOXETINE [Suspect]
  7. KADIAN [Suspect]

REACTIONS (22)
  - COMA [None]
  - CARDIAC ARREST [None]
  - INCREASED BRONCHIAL SECRETION [None]
  - HYPOTENSION [None]
  - HEART RATE INCREASED [None]
  - AREFLEXIA [None]
  - PULSELESS ELECTRICAL ACTIVITY [None]
  - HYPOXIC-ISCHAEMIC ENCEPHALOPATHY [None]
  - ACCIDENTAL DEATH [None]
  - INCREASED UPPER AIRWAY SECRETION [None]
  - CIRCULATORY COLLAPSE [None]
  - BRAIN DEATH [None]
  - SELF-MEDICATION [None]
  - UNRESPONSIVE TO STIMULI [None]
  - PUPIL FIXED [None]
  - RESPIRATORY ARREST [None]
  - APNOEA [None]
  - HYPERTHERMIA [None]
  - RESPIRATION ABNORMAL [None]
  - TACHYCARDIA [None]
  - BRADYCARDIA [None]
  - BRONCHOPNEUMONIA [None]
